FAERS Safety Report 9800768 (Version 1)
Quarter: 2014Q1

REPORT INFORMATION
  Report Type: Spontaneous
  Country: US (occurrence: US)
  Receive Date: 20140107
  Receipt Date: 20140107
  Transmission Date: 20141002
  Serious: No
  Sender: FDA-Public Use
  Company Number: US-PFIZER INC-2014002480

PATIENT
  Age: 35 Year
  Sex: Female
  Weight: 83.9 kg

DRUGS (5)
  1. ALPRAZOLAM [Suspect]
     Indication: ANXIETY
     Dosage: 6 MG, AS NEEDED
     Route: 048
     Dates: start: 1988
  2. ALPRAZOLAM [Suspect]
     Indication: DEPRESSION
  3. PROZAC [Concomitant]
     Dosage: UNK
  4. EFFEXOR [Concomitant]
     Dosage: UNK
  5. SYNTHROID [Concomitant]
     Indication: AUTOIMMUNE THYROIDITIS
     Dosage: UNK

REACTIONS (3)
  - Drug ineffective [Unknown]
  - Drug tolerance increased [Unknown]
  - Malaise [Unknown]
